FAERS Safety Report 9679990 (Version 1)
Quarter: 2013Q4

REPORT INFORMATION
  Report Type: Spontaneous
  Country: ES (occurrence: ES)
  Receive Date: 20131110
  Receipt Date: 20131110
  Transmission Date: 20140711
  Serious: Yes (Hospitalization)
  Sender: FDA-Public Use
  Company Number: PHHY2013ES126436

PATIENT
  Age: 60 Year
  Sex: Male

DRUGS (3)
  1. EXFORGE HCT [Suspect]
     Indication: HYPERTENSION
     Dosage: 1 DF, QD (160 MG VALS, 10 MG AMLO AND 12.5 MG HCTZ)
     Route: 048
     Dates: start: 20130103, end: 20130203
  2. TORASEMIDE [Suspect]
     Indication: CARDIAC FAILURE
     Dosage: 10 MG, QD
     Route: 048
     Dates: start: 20130202, end: 20130202
  3. ATENOLOL [Concomitant]
     Indication: CARDIAC FAILURE
     Dosage: 50 MG, QD
     Route: 048
     Dates: start: 20130112

REACTIONS (2)
  - Confusional state [Recovered/Resolved]
  - Hyponatraemia [Recovered/Resolved]
